FAERS Safety Report 7645786-8 (Version None)
Quarter: 2011Q3

REPORT INFORMATION
  Report Type: 
  Country: None (occurrence: None)
  Receive Date: 20110729
  Receipt Date: 20110715
  Transmission Date: 20111222
  Serious: Yes (Disabling)
  Sender: FDA-Public Use
  Company Number: CA-VALEANT-2011VX002092

PATIENT
  Age: 57 Year
  Sex: Female
  Weight: 65 kg

DRUGS (4)
  1. TIMOPTIC-XE [Suspect]
     Route: 047
  2. VOLTAREN [Concomitant]
     Route: 065
  3. AZOPT [Suspect]
     Route: 047
  4. VITAMIN D [Concomitant]
     Route: 065

REACTIONS (2)
  - REACTION TO DRUG EXCIPIENTS [None]
  - CATARACT [None]
